FAERS Safety Report 11204840 (Version 3)
Quarter: 2015Q3

REPORT INFORMATION
  Report Type: Spontaneous
  Country: US (occurrence: None)
  Receive Date: 20150617
  Receipt Date: 20150716
  Transmission Date: 20151125
  Serious: Yes (Hospitalization)
  Sender: FDA-Public Use
  Company Number: 1713747-2015-999174

PATIENT
  Age: 77 Year
  Sex: Male

DRUGS (25)
  1. LASIX [Concomitant]
     Active Substance: FUROSEMIDE
  2. MULTIVITAMIN [Concomitant]
     Active Substance: VITAMINS
  3. ASPIRIN. [Concomitant]
     Active Substance: ASPIRIN
  4. COLACE [Concomitant]
     Active Substance: DOCUSATE SODIUM
  5. RENVELA [Concomitant]
     Active Substance: SEVELAMER CARBONATE
  6. DELFLEX [Suspect]
     Active Substance: CALCIUM CHLORIDE\DEXTROSE MONOHYDRATE\MAGNESIUM CHLORIDE\SODIUM CHLORIDE\SODIUM LACTATE
     Indication: PERITONEAL DIALYSIS
     Route: 033
  7. LIBERTY CYCLER CASSETTE [Concomitant]
     Active Substance: DEVICE
  8. TARTRATE [Concomitant]
  9. PROSCAR [Concomitant]
     Active Substance: FINASTERIDE
  10. LISINOPRIL. [Concomitant]
     Active Substance: LISINOPRIL
  11. EPOETIN [Concomitant]
     Active Substance: ERYTHROPOIETIN
  12. FLOMAX [Concomitant]
     Active Substance: TAMSULOSIN HYDROCHLORIDE
  13. FUMOTIDINE [Concomitant]
  14. METOPROLOL [Concomitant]
     Active Substance: METOPROLOL
  15. LORATADINE. [Concomitant]
     Active Substance: LORATADINE
  16. PLAVIX [Concomitant]
     Active Substance: CLOPIDOGREL BISULFATE
  17. TAMSULOSIN [Concomitant]
     Active Substance: TAMSULOSIN
  18. LIBERTY CYCLER [Concomitant]
     Active Substance: DEVICE
  19. ALLOPURINOL. [Concomitant]
     Active Substance: ALLOPURINOL
  20. PROTONIX [Concomitant]
     Active Substance: PANTOPRAZOLE SODIUM
  21. GENTAMICIN. [Concomitant]
     Active Substance: GENTAMICIN
  22. CALCITROL [Concomitant]
     Active Substance: CALCITRIOL
  23. LOPRESSOR [Concomitant]
     Active Substance: METOPROLOL TARTRATE
  24. LIPITOR [Concomitant]
     Active Substance: ATORVASTATIN CALCIUM
  25. SENNA [Concomitant]
     Active Substance: SENNA LEAF\SENNOSIDES\SENNOSIDES A AND B

REACTIONS (11)
  - Device malfunction [None]
  - Asthenia [None]
  - Decreased appetite [None]
  - Urinary tract infection fungal [None]
  - Haematuria [None]
  - Prostatitis [None]
  - Oedema [None]
  - Acute myocardial infarction [None]
  - Prostatic haemorrhage [None]
  - Body temperature increased [None]
  - Fluid overload [None]

NARRATIVE: CASE EVENT DATE: 20150413
